FAERS Safety Report 7038662-5 (Version None)
Quarter: 2010Q4

REPORT INFORMATION
  Report Type: 
  Country: None (occurrence: None)
  Receive Date: 20101011
  Receipt Date: 20101007
  Transmission Date: 20110411
  Serious: No
  Sender: FDA-Public Use
  Company Number: US-PFIZER INC-2010128303

PATIENT
  Sex: Male
  Weight: 76.644 kg

DRUGS (2)
  1. ZYVOX [Suspect]
     Indication: INFECTION
     Dosage: 600 MG, 2X/DAY
     Route: 048
     Dates: start: 20100922, end: 20100928
  2. ZYVOX [Suspect]
     Indication: OEDEMA PERIPHERAL

REACTIONS (1)
  - RASH [None]
